FAERS Safety Report 7266618-6 (Version None)
Quarter: 2011Q1

REPORT INFORMATION
  Report Type: 
  Country: None (occurrence: None)
  Receive Date: 20110131
  Receipt Date: 20110127
  Transmission Date: 20110831
  Serious: Yes (Hospitalization, Other)
  Sender: FDA-Public Use
  Company Number: US-AMGEN-USASP2011005516

PATIENT
  Age: 84 Year
  Sex: Female

DRUGS (1)
  1. NPLATE [Suspect]
     Indication: IDIOPATHIC THROMBOCYTOPENIC PURPURA
     Dosage: 81 A?G, UNK
     Dates: start: 20101221, end: 20101221

REACTIONS (4)
  - ASTHENIA [None]
  - NAUSEA [None]
  - DRUG INEFFECTIVE [None]
  - PAIN [None]
